FAERS Safety Report 6328230-2 (Version None)
Quarter: 2009Q3

REPORT INFORMATION
  Report Type: 
  Country: None (occurrence: None)
  Receive Date: 20090825
  Receipt Date: 20090224
  Transmission Date: 20100115
  Serious: No
  Sender: FDA-Public Use
  Company Number: US-ABBOTT-09P-163-0559592-00

PATIENT
  Sex: Female
  Weight: 65.83 kg

DRUGS (1)
  1. SYNTHROID [Suspect]
     Indication: HYPOTHYROIDISM
     Dates: start: 20000101

REACTIONS (4)
  - BLOOD THYROID STIMULATING HORMONE ABNORMAL [None]
  - CONSTIPATION [None]
  - DRUG INEFFECTIVE [None]
  - PERIPHERAL COLDNESS [None]
